FAERS Safety Report 9055172 (Version 1)
Quarter: 2013Q1

REPORT INFORMATION
  Report Type: Spontaneous
  Country: US (occurrence: US)
  Receive Date: 20130206
  Receipt Date: 20130206
  Transmission Date: 20140127
  Serious: Yes (Death)
  Sender: FDA-Public Use
  Company Number: US-JNJFOC-20130200512

PATIENT
  Age: 50 Year
  Sex: Female

DRUGS (3)
  1. EXTRA STRENGTH TYLENOL [Suspect]
     Indication: INFLUENZA
     Dosage: 500MG/TABLET, 2 TABLETS EVERY 2 HOURS
     Route: 065
  2. EXTRA STRENGTH TYLENOL [Suspect]
     Indication: SINUS DISORDER
     Dosage: 500MG/TABLET, 2 TABLETS EVERY 2 HOURS
     Route: 065
  3. EXTRA STRENGTH TYLENOL [Suspect]
     Indication: PAIN
     Dosage: 500MG/TABLET, 2 TABLETS EVERY 2 HOURS
     Route: 065

REACTIONS (5)
  - Overdose [Fatal]
  - Hepatotoxicity [Fatal]
  - Hepatic failure [Fatal]
  - Vomiting [Unknown]
  - Pain [Unknown]
